FAERS Safety Report 7895698-X (Version None)
Quarter: 2011Q4

REPORT INFORMATION
  Report Type: 
  Country: None (occurrence: None)
  Receive Date: 20111106
  Receipt Date: 20110830
  Transmission Date: 20120403
  Serious: No
  Sender: FDA-Public Use
  Company Number: US-AMGEN-USASP2011044504

PATIENT
  Sex: Female

DRUGS (8)
  1. VITAMIN D [Concomitant]
     Dosage: 1000 IU, UNK
  2. FISH OIL [Concomitant]
     Dosage: UNK
  3. TOPROL-XL [Concomitant]
     Dosage: 100 MG, UNK
  4. FOLIC ACID [Concomitant]
     Dosage: 1 MG, UNK
  5. PLAQUENIL [Concomitant]
     Dosage: 200 MG, UNK
  6. ACTIGALL [Concomitant]
     Dosage: 300 MG, UNK
  7. PRILOSEC [Concomitant]
     Dosage: 40 MG, UNK
  8. ENBREL [Suspect]
     Indication: PRODUCT USED FOR UNKNOWN INDICATION
     Dosage: 50 MG, QWK
     Route: 058

REACTIONS (2)
  - NASOPHARYNGITIS [None]
  - ANKLE FRACTURE [None]
